FAERS Safety Report 4538395-0 (Version None)
Quarter: 2004Q4

REPORT INFORMATION
  Report Type: 
  Country: None (occurrence: None)
  Receive Date: 20041223
  Receipt Date: 20041223
  Transmission Date: 20050328
  Serious: Yes (Hospitalization)
  Sender: FDA-Public Use
  Company Number: None

PATIENT
  Age: 64 Year
  Sex: Male

DRUGS (2)
  1. METFORMIN HCL [Suspect]
     Dosage: 500 MG BID
     Route: 048
  2. GLYBURIDE [Suspect]
     Dosage: 7.5 MG PO QD
     Route: 048

REACTIONS (1)
  - HYPOGLYCAEMIA [None]
